FAERS Safety Report 10984989 (Version 1)
Quarter: 2015Q2

REPORT INFORMATION
  Report Type: Spontaneous
  Country: FR (occurrence: FR)
  Receive Date: 20150403
  Receipt Date: 20150403
  Transmission Date: 20150821
  Serious: Yes (Other)
  Sender: FDA-Public Use
  Company Number: FR-ASTRAZENECA-2015SE29962

PATIENT
  Age: 23386 Day
  Sex: Male

DRUGS (11)
  1. XEROQUEL [Suspect]
     Active Substance: QUETIAPINE FUMARATE
     Dosage: DOSE PROGRESSIVELY INCREASED FROM 50 MG TO 400 MG
     Route: 048
     Dates: start: 20150115, end: 20150123
  2. PREVISCAN [Interacting]
     Active Substance: FLUINDIONE
     Dosage: 2 PER DAY EVERY OTHER DAY AND 2.5 PER DAY EVERY OTHER DAY
     Route: 048
     Dates: start: 20150212
  3. VENLAFAXINE [Interacting]
     Active Substance: VENLAFAXINE HYDROCHLORIDE
     Route: 048
     Dates: start: 20141120
  4. XEROQUEL [Interacting]
     Active Substance: QUETIAPINE FUMARATE
     Route: 048
     Dates: start: 20150212
  5. PREVISCAN [Interacting]
     Active Substance: FLUINDIONE
     Dosage: 2.25 PER DAY ONE DAY ON THREE AND 2.5 PER DAY TWO DAYS ON THREE
     Route: 048
     Dates: start: 20150126
  6. XEROQUEL [Interacting]
     Active Substance: QUETIAPINE FUMARATE
     Route: 048
     Dates: start: 20150202, end: 20150212
  7. PREVISCAN [Interacting]
     Active Substance: FLUINDIONE
     Dosage: TWO PER DAY
     Route: 048
     Dates: start: 20150216
  8. TAHOR [Interacting]
     Active Substance: ATORVASTATIN CALCIUM
     Route: 048
     Dates: start: 20141119
  9. XEROQUEL [Interacting]
     Active Substance: QUETIAPINE FUMARATE
     Route: 048
     Dates: start: 20150123, end: 20150202
  10. TRIATEC [Interacting]
     Active Substance: RAMIPRIL
     Route: 048
     Dates: start: 20141120
  11. PREVISCAN [Interacting]
     Active Substance: FLUINDIONE
     Route: 048
     Dates: start: 20141119

REACTIONS (2)
  - International normalised ratio increased [Recovering/Resolving]
  - Drug interaction [Unknown]

NARRATIVE: CASE EVENT DATE: 20150210
